FAERS Safety Report 24826832 (Version 2)
Quarter: 2025Q1

REPORT INFORMATION
  Report Type: Spontaneous
  Country: US (occurrence: US)
  Receive Date: 20250109
  Receipt Date: 20250124
  Transmission Date: 20250409
  Serious: Yes (Life-Threatening, Hospitalization)
  Sender: TEVA
  Company Number: US-TEVA-VS-3283311

PATIENT
  Sex: Male

DRUGS (2)
  1. IBUPROFEN [Suspect]
     Active Substance: IBUPROFEN
     Indication: Overdose
     Route: 048
     Dates: start: 202202
  2. DIPHENHYDRAMINE [Suspect]
     Active Substance: DIPHENHYDRAMINE
     Indication: Overdose
     Route: 048
     Dates: start: 202202

REACTIONS (10)
  - Coma [Unknown]
  - Renal failure [Unknown]
  - Hypotension [Unknown]
  - Metabolic acidosis [Recovering/Resolving]
  - Aspiration [Unknown]
  - Acute respiratory distress syndrome [Recovering/Resolving]
  - Respiratory acidosis [Recovering/Resolving]
  - Cardiac arrest [Recovered/Resolved]
  - Hyperkalaemia [Unknown]
  - Overdose [Unknown]

NARRATIVE: CASE EVENT DATE: 20220201
